FAERS Safety Report 7262483-1 (Version None)
Quarter: 2011Q1

REPORT INFORMATION
  Report Type: 
  Country: None (occurrence: None)
  Receive Date: 20110130
  Receipt Date: 20101118
  Transmission Date: 20110831
  Serious: No
  Sender: FDA-Public Use
  Company Number: US-ABBOTT-10P-163-0686580-00

PATIENT

DRUGS (12)
  1. ZYRTEC [Concomitant]
     Indication: NASOPHARYNGITIS
  2. ACCUFLORA [Concomitant]
     Indication: CROHN'S DISEASE
  3. FE [Concomitant]
     Indication: ANAEMIA
  4. FISH OIL [Concomitant]
     Indication: ASTHMA
  5. ADVAIR [Concomitant]
     Indication: HYPERSENSITIVITY
     Dosage: 250/50MCG
  6. BIOTIN [Concomitant]
     Indication: CROHN'S DISEASE
  7. ASACOL [Concomitant]
     Indication: CROHN'S DISEASE
     Dosage: 400MG X 3 TABLETS BID
  8. HUMIRA [Suspect]
     Indication: CROHN'S DISEASE
     Dates: start: 20100801
  9. VITAMIN D [Concomitant]
     Indication: PROPHYLAXIS
     Dosage: 2000 UNITS X 3 TABLETS AM; 2 PM
  10. VITAMIN D [Concomitant]
     Indication: BONE DENSITY DECREASED
  11. FISH OIL [Concomitant]
     Indication: INFLAMMATION
  12. MAGNESIUM [Concomitant]
     Indication: PRODUCT USED FOR UNKNOWN INDICATION

REACTIONS (3)
  - THROAT IRRITATION [None]
  - UPPER RESPIRATORY TRACT CONGESTION [None]
  - COUGH [None]
